FAERS Safety Report 6591345-8 (Version None)
Quarter: 2010Q1

REPORT INFORMATION
  Report Type: 
  Country: None (occurrence: None)
  Receive Date: 20100219
  Receipt Date: 20100215
  Transmission Date: 20100710
  Serious: Yes (Death, Hospitalization)
  Sender: FDA-Public Use
  Company Number: NL-TEVA-224417ISR

PATIENT
  Age: 70 Year
  Sex: Male

DRUGS (3)
  1. FUROSEMIDE [Suspect]
     Route: 042
  2. FUROSEMIDE [Interacting]
     Route: 042
  3. GEMCITABINE [Interacting]
     Route: 042

REACTIONS (11)
  - ARTHRITIS INFECTIVE [None]
  - DRUG INTERACTION [None]
  - GASTROINTESTINAL DISORDER [None]
  - HAEMORRHAGE [None]
  - OTOTOXICITY [None]
  - POST PROCEDURAL COMPLICATION [None]
  - POST PROCEDURAL INFECTION [None]
  - RENAL FAILURE ACUTE [None]
  - RESPIRATORY FAILURE [None]
  - STAPHYLOCOCCAL SEPSIS [None]
  - SUDDEN HEARING LOSS [None]
